FAERS Safety Report 19489473 (Version 1)
Quarter: 2021Q3

REPORT INFORMATION
  Report Type: Spontaneous
  Country: FR (occurrence: FR)
  Receive Date: 20210703
  Receipt Date: 20210703
  Transmission Date: 20211014
  Serious: Yes (Hospitalization)
  Sender: FDA-Public Use
  Company Number: FR-ACCORD-230405

PATIENT
  Age: 70 Year
  Sex: Male
  Weight: 67 kg

DRUGS (5)
  1. OXAZEPAM. [Suspect]
     Active Substance: OXAZEPAM
     Indication: ANXIETY
     Dosage: 5 MG LE MATIN ET 5 MG LE SOIR
     Route: 048
     Dates: start: 20210331, end: 20210422
  2. COMIRNATY [Suspect]
     Active Substance: TOZINAMERAN
     Indication: COVID-19 IMMUNISATION
     Dosage: D
     Route: 030
     Dates: start: 20210512
  3. SERESTA [Suspect]
     Active Substance: OXAZEPAM
     Indication: ANXIETY
     Dosage: 5 MG LE SOIR
     Route: 048
     Dates: start: 20210423
  4. FENOFIBRATE. [Concomitant]
     Active Substance: FENOFIBRATE
  5. ESCITALOPRAM [Suspect]
     Active Substance: ESCITALOPRAM OXALATE
     Indication: DEPRESSION
     Route: 048
     Dates: start: 20210507, end: 20210512

REACTIONS (2)
  - Confusional state [Recovering/Resolving]
  - Condition aggravated [Recovering/Resolving]

NARRATIVE: CASE EVENT DATE: 20210512
